FAERS Safety Report 20705817 (Version 8)
Quarter: 2022Q4

REPORT INFORMATION
  Report Type: Report from Study
  Country: BE (occurrence: BE)
  Receive Date: 20220413
  Receipt Date: 20221229
  Transmission Date: 20230113
  Serious: Yes (Life-Threatening, Hospitalization)
  Sender: FDA-Public Use
  Company Number: BE-PFIZER INC-202200526034

PATIENT
  Age: 77 Year
  Sex: Male
  Weight: 80 kg

DRUGS (15)
  1. SASANLIMAB [Suspect]
     Active Substance: SASANLIMAB
     Indication: Bladder transitional cell carcinoma
     Dosage: 300 MG, MONTHLY (EVERY 4 WEEKS) INDUCTION PERIOD ONLY
     Route: 058
     Dates: start: 20201228, end: 20211005
  2. BCG VACCINE [Suspect]
     Active Substance: BCG VACCINE
     Indication: Bladder transitional cell carcinoma
     Dosage: 50 ML, AS PER PROTOCOL ARM B, ONLY INDUCTION PERIOD (6 WEEKS)
     Route: 043
     Dates: start: 20201228, end: 20210222
  3. ALDACTONE [Suspect]
     Active Substance: SPIRONOLACTONE
     Indication: Hypertension
     Dosage: 25 MG, 1X/DAY
     Route: 048
     Dates: start: 20211210, end: 20220404
  4. METFORMIN HYDROCHLORIDE [Suspect]
     Active Substance: METFORMIN HYDROCHLORIDE
     Indication: Type 2 diabetes mellitus
     Dosage: 850 MG, 2X/DAY
     Route: 048
     Dates: start: 20211027, end: 20220404
  5. ALENDRONATE [Concomitant]
     Active Substance: ALENDRONATE SODIUM
     Indication: Polymyalgia rheumatica
     Dosage: 70 MG, WEEKLY
     Route: 048
     Dates: start: 20211123, end: 20220404
  6. PANTOPRAZOLE SODIUM [Concomitant]
     Active Substance: PANTOPRAZOLE SODIUM
     Indication: Prophylaxis
     Dosage: 10 MG, 1X/DAY
     Route: 048
     Dates: start: 20211027
  7. BISOPROLOL [Concomitant]
     Active Substance: BISOPROLOL
     Indication: Blood pressure abnormal
     Dosage: 2.5 MG, 1X/DAY
     Route: 048
     Dates: start: 20210923
  8. BISOPROLOL [Concomitant]
     Active Substance: BISOPROLOL
     Dosage: 5 MG, 1X/DAY
     Route: 048
     Dates: start: 20210923
  9. PREDNISOLONE [Concomitant]
     Active Substance: PREDNISOLONE
     Indication: Polymyalgia rheumatica
     Dosage: 7 MG, 1X/DAY
     Route: 048
     Dates: start: 20220326, end: 20220424
  10. ELIQUIS [Concomitant]
     Active Substance: APIXABAN
     Indication: Blood pressure abnormal
     Dosage: 5 MG, 2X/DAY
     Route: 048
     Dates: start: 20211027, end: 20220404
  11. NOVORAPID [Concomitant]
     Active Substance: INSULIN ASPART
     Indication: Type 2 diabetes mellitus
     Dosage: 100 IU/ML, 1X/DAY
     Route: 058
     Dates: start: 2013
  12. LANTUS [Concomitant]
     Active Substance: INSULIN GLARGINE
     Indication: Type 2 diabetes mellitus
     Dosage: 100 IU/ML, 1X/DAY
     Route: 058
     Dates: start: 2013
  13. CALCIUM CARBONATE\CHOLECALCIFEROL [Concomitant]
     Active Substance: CALCIUM CARBONATE\CHOLECALCIFEROL
     Dosage: 1000 MG, 1X/DAY
     Route: 048
     Dates: start: 20211027
  14. ZOCOR [Concomitant]
     Active Substance: SIMVASTATIN
     Indication: Blood cholesterol abnormal
     Dosage: 40 MG, 1X/DAY
     Route: 048
     Dates: start: 2013, end: 20220404
  15. STEOVIT FORTE [Concomitant]
     Indication: Supplementation therapy
     Dosage: [CALCIUM CARBONATE, 1000 MG ]/[COLECALCIFEROL 800 IU],1X/DAY
     Route: 048
     Dates: start: 20211027

REACTIONS (1)
  - Chronic kidney disease [Not Recovered/Not Resolved]

NARRATIVE: CASE EVENT DATE: 20220404
